FAERS Safety Report 5875371-X (Version None)
Quarter: 2008Q3

REPORT INFORMATION
  Report Type: 
  Country: None (occurrence: None)
  Receive Date: 20080909
  Receipt Date: 20080904
  Transmission Date: 20090109
  Serious: Yes (Other)
  Sender: FDA-Public Use
  Company Number: DE-TEVA-174877ISR

PATIENT
  Sex: Male

DRUGS (4)
  1. METHOTREXATE [Suspect]
     Indication: BURKITT'S LYMPHOMA
     Route: 042
     Dates: start: 20080604
  2. ABACAVIR SULFATE/LAMIVUDINE [Suspect]
  3. TRUVADA [Suspect]
  4. ATAZANAVIR [Suspect]

REACTIONS (2)
  - DRUG INTERACTION [None]
  - RENAL FAILURE [None]
